FAERS Safety Report 7125076-2 (Version None)
Quarter: 2010Q4

REPORT INFORMATION
  Report Type: 
  Country: None (occurrence: None)
  Receive Date: 20101129
  Receipt Date: 20101012
  Transmission Date: 20110411
  Serious: Yes (Death, Hospitalization, Other)
  Sender: FDA-Public Use
  Company Number: US-AMGEN LTD.-US385424

PATIENT

DRUGS (12)
  1. NPLATE [Suspect]
     Indication: IDIOPATHIC THROMBOCYTOPENIC PURPURA
     Dosage: 2 A?G/KG, QWK
     Route: 058
     Dates: start: 20091204, end: 20100106
  2. NPLATE [Suspect]
     Dosage: 2 A?G/KG, QWK
     Route: 058
     Dates: start: 20091204, end: 20100106
  3. NPLATE [Suspect]
     Dosage: 1 A?G/KG, QWK
     Dates: start: 20091204, end: 20091204
  4. NPLATE [Suspect]
     Dosage: 1 A?G/KG, QWK
     Dates: start: 20091204, end: 20091204
  5. LETROZOLE [Suspect]
     Dosage: 2.5 MG, UNK
     Dates: start: 20070123, end: 20100112
  6. LOSARTAN POTASSIUM [Concomitant]
     Dosage: 50 MG, QD
     Route: 048
  7. GLYBURIDE [Concomitant]
     Dosage: 10 MG, QD
     Route: 048
  8. ERGOCALCIFEROL [Concomitant]
     Dosage: 400 IU, QD
  9. CALCIUM [Concomitant]
     Dosage: UNK UNK, UNK
  10. COMBIVENT [Concomitant]
     Dosage: UNK UNK, QID
  11. ASPIRIN [Concomitant]
     Dosage: 81 MG, QD
     Route: 048
     Dates: end: 20100112
  12. RANITIDINE HYDROCHLORIDE [Concomitant]
     Dosage: 150 MG, BID
     Route: 048

REACTIONS (4)
  - DEATH [None]
  - DEEP VEIN THROMBOSIS [None]
  - PULMONARY EMBOLISM [None]
  - THROMBOCYTOSIS [None]
